FAERS Safety Report 20614224 (Version 3)
Quarter: 2022Q2

REPORT INFORMATION
  Report Type: Spontaneous
  Country: TW (occurrence: TW)
  Receive Date: 20220320
  Receipt Date: 20220408
  Transmission Date: 20220721
  Serious: Yes (Death)
  Sender: FDA-Public Use
  Company Number: TW-CHUGAI-2022009225

PATIENT
  Age: 80 Year
  Sex: Female

DRUGS (6)
  1. ACTEMRA [Suspect]
     Active Substance: TOCILIZUMAB
     Indication: Rheumatoid arthritis
     Dosage: UNK, MOST RECENT DOSE ON 04/OCT/2021.
     Route: 041
     Dates: start: 20161102, end: 20211004
  2. ACTEMRA [Suspect]
     Active Substance: TOCILIZUMAB
     Indication: Rheumatoid arthritis
     Dosage: MOST RECENT DOSE ON 20/DEC/2021
     Route: 058
     Dates: start: 20211206, end: 20211220
  3. FEXOFENADINE [Concomitant]
     Active Substance: FEXOFENADINE HYDROCHLORIDE
     Dosage: 180 MILLIGRAM, QD
     Route: 048
     Dates: start: 20210510, end: 20220117
  4. CELECOXIB [Concomitant]
     Active Substance: CELECOXIB
     Indication: Rheumatoid arthritis
     Dosage: 200 MILLIGRAM, QD
     Route: 048
     Dates: start: 20210510, end: 20220117
  5. FOLIC ACID [Concomitant]
     Active Substance: FOLIC ACID
     Indication: Rheumatoid arthritis
     Dosage: 5 MILLIGRAM, QD
     Route: 048
     Dates: start: 2019, end: 20220117
  6. IMIPRAMINE [Concomitant]
     Active Substance: IMIPRAMINE
     Dosage: 25 MILLIGRAM, QD
     Route: 048
     Dates: start: 20211122, end: 20220117

REACTIONS (3)
  - Death [Fatal]
  - Pneumonia [Fatal]
  - Herpes virus infection [Recovered/Resolved]

NARRATIVE: CASE EVENT DATE: 20191010
